FAERS Safety Report 18673253 (Version 1)
Quarter: 2020Q4

REPORT INFORMATION
  Report Type: Spontaneous
  Country: US (occurrence: US)
  Receive Date: 20201229
  Receipt Date: 20201229
  Transmission Date: 20210114
  Serious: No
  Sender: FDA-Public Use
  Company Number: US-BAUSCH-BL-2020-035448

PATIENT
  Age: 66 Year
  Sex: Female

DRUGS (1)
  1. LUMIFY [Suspect]
     Active Substance: BRIMONIDINE TARTRATE
     Indication: OCULAR HYPERAEMIA
     Dosage: STARTED ABOUT 2 YEARS AGO?AS NEEDED
     Route: 047
     Dates: start: 2018, end: 2020

REACTIONS (5)
  - Eye pain [Recovered/Resolved]
  - Urticaria [Recovered/Resolved]
  - Product quality issue [Unknown]
  - Eye irritation [Unknown]
  - Product packaging issue [Unknown]

NARRATIVE: CASE EVENT DATE: 20201125
